FAERS Safety Report 18621707 (Version 3)
Quarter: 2021Q1

REPORT INFORMATION
  Report Type: Report from Study
  Country: None (occurrence: US)
  Receive Date: 20201216
  Receipt Date: 20210207
  Transmission Date: 20210419
  Serious: Yes (Other)
  Sender: FDA-Public Use
  Company Number: US-ABBVIE-20K-163-3688414-00

PATIENT
  Age: 54 Year
  Sex: Female
  Weight: 74.91 kg

DRUGS (2)
  1. RINVOQ [Suspect]
     Active Substance: UPADACITINIB
     Indication: RHEUMATOID ARTHRITIS
     Route: 048
     Dates: start: 20200515, end: 20201103
  2. LINZESS [Concomitant]
     Active Substance: LINACLOTIDE
     Indication: PRODUCT USED FOR UNKNOWN INDICATION
     Route: 065

REACTIONS (11)
  - Gastric perforation [Not Recovered/Not Resolved]
  - Nausea [Not Recovered/Not Resolved]
  - Urinary tract infection [Recovered/Resolved]
  - Volvulus [Not Recovered/Not Resolved]
  - Foot fracture [Recovered/Resolved]
  - Pain [Recovering/Resolving]
  - Oral fungal infection [Recovered/Resolved]
  - Gastric disorder [Unknown]
  - Kidney infection [Recovered/Resolved]
  - Illness [Not Recovered/Not Resolved]
  - Colitis [Not Recovered/Not Resolved]

NARRATIVE: CASE EVENT DATE: 2020
